FAERS Safety Report 6767287-1 (Version None)
Quarter: 2010Q2

REPORT INFORMATION
  Report Type: 
  Country: None (occurrence: None)
  Receive Date: 20100614
  Receipt Date: 20100603
  Transmission Date: 20101027
  Serious: Yes (Other)
  Sender: FDA-Public Use
  Company Number: CA-JNJFOC-20100601691

PATIENT
  Sex: Female
  Weight: 65.9 kg

DRUGS (2)
  1. REMICADE [Suspect]
     Indication: CROHN'S DISEASE
     Route: 042
  2. WELLBUTRIN [Concomitant]

REACTIONS (1)
  - RECTAL HAEMORRHAGE [None]
